FAERS Safety Report 5979379-5 (Version None)
Quarter: 2008Q4

REPORT INFORMATION
  Report Type: 
  Country: None (occurrence: None)
  Receive Date: 20081204
  Receipt Date: 20081201
  Transmission Date: 20090506
  Serious: Yes (Death, Hospitalization)
  Sender: FDA-Public Use
  Company Number: NL-SANOFI-SYNTHELABO-F01200801799

PATIENT
  Sex: Female

DRUGS (3)
  1. CAPECITABINE [Suspect]
     Route: 048
  2. BEVACIZUMAB [Suspect]
     Route: 042
  3. OXALIPLATIN [Suspect]
     Indication: COLORECTAL CANCER
     Route: 041

REACTIONS (1)
  - DISEASE PROGRESSION [None]
